FAERS Safety Report 15536882 (Version 1)
Quarter: 2018Q4

REPORT INFORMATION
  Report Type: Spontaneous
  Country: GB (occurrence: GB)
  Receive Date: 20181022
  Receipt Date: 20181022
  Transmission Date: 20190205
  Serious: Yes (Other)
  Sender: FDA-Public Use
  Company Number: GB-TEVA-2018-GB-966886

PATIENT
  Age: 51 Year
  Sex: Female
  Weight: 97.97 kg

DRUGS (4)
  1. BISOPROLOL FUMARATE. [Suspect]
     Active Substance: BISOPROLOL FUMARATE
     Indication: HYPERTENSION
     Dosage: 2.5
     Route: 048
     Dates: start: 20180916, end: 20180923
  2. AMLODIPINE [Concomitant]
     Active Substance: AMLODIPINE BESYLATE
  3. AMIAS [Concomitant]
     Active Substance: CANDESARTAN CILEXETIL
  4. EPILIM [Concomitant]
     Active Substance: VALPROATE SODIUM

REACTIONS (1)
  - Conjunctival haemorrhage [Not Recovered/Not Resolved]

NARRATIVE: CASE EVENT DATE: 20180920
